FAERS Safety Report 7021156-0 (Version None)
Quarter: 2010Q3

REPORT INFORMATION
  Report Type: 
  Country: None (occurrence: None)
  Receive Date: 20100929
  Receipt Date: 20100920
  Transmission Date: 20110219
  Serious: Yes (Death, Other)
  Sender: FDA-Public Use
  Company Number: PHHY2010MX23449

PATIENT
  Sex: Female

DRUGS (2)
  1. FEMARA [Suspect]
     Indication: NEOPLASM MALIGNANT
     Dosage: 1 TABLET (2.5 MG) PER DAY
     Route: 048
     Dates: start: 20080801
  2. TAXUS [Concomitant]

REACTIONS (4)
  - MALIGNANT NEOPLASM PROGRESSION [None]
  - PLEURAL EFFUSION [None]
  - RESPIRATORY ARREST [None]
  - RESPIRATORY FAILURE [None]
